FAERS Safety Report 10230634 (Version 1)
Quarter: 2014Q2

REPORT INFORMATION
  Report Type: Spontaneous
  Country: US (occurrence: None)
  Receive Date: 20140610
  Receipt Date: 20140610
  Transmission Date: 20141212
  Serious: No
  Sender: FDA-Public Use
  Company Number: None

PATIENT
  Age: 59 Year
  Sex: Female
  Weight: 57.61 kg

DRUGS (1)
  1. LEVOTHYROXIN [Suspect]
     Indication: HYPOTHYROIDISM
     Route: 048
     Dates: start: 20140407

REACTIONS (6)
  - Fatigue [None]
  - Temperature intolerance [None]
  - Hypothyroidism [None]
  - Product substitution issue [None]
  - Product quality issue [None]
  - Disease recurrence [None]
